FAERS Safety Report 23848224 (Version 1)
Quarter: 2024Q2

REPORT INFORMATION
  Report Type: Spontaneous
  Country: US (occurrence: US)
  Receive Date: 20240513
  Receipt Date: 20240513
  Transmission Date: 20240716
  Serious: No
  Sender: FDA-Public Use
  Company Number: US-GALDERMA-US2024006599

PATIENT

DRUGS (5)
  1. PROACTIV MD ADAPALENE ACNE TREATMENT [Suspect]
     Active Substance: ADAPALENE
     Indication: Acne
     Dosage: 1 DOSAGE FORM, QD
     Route: 061
     Dates: start: 202311
  2. Proactiv MD Ultra Gentle Cleanser [Concomitant]
     Indication: Acne
     Dosage: 1 DOSAGE FORM, 2 OR MORE TIMES A DAY
     Route: 061
     Dates: start: 202311
  3. COSMETICS [Concomitant]
     Active Substance: COSMETICS
     Indication: Acne
     Dosage: 1 DOSAGE FORM, 2 OR MORE TIMES A DAY
     Route: 061
     Dates: start: 202311
  4. PROACTIV ACNE BODY WASH [Concomitant]
     Active Substance: SALICYLIC ACID
     Indication: Acne
     Dosage: 1 DOSAGE FORM, 2 OR MORE TIMES A DAY
     Route: 061
     Dates: start: 202311
  5. PROACTIV BLACKHEAD DISSOLVING [Concomitant]
     Active Substance: SALICYLIC ACID
     Indication: Acne
     Dosage: 1 DOSAGE FORM, 2 OR MORE TIMES A DAY
     Route: 061
     Dates: start: 202311

REACTIONS (2)
  - Acne [Not Recovered/Not Resolved]
  - Erythema [Not Recovered/Not Resolved]

NARRATIVE: CASE EVENT DATE: 20231201
